FAERS Safety Report 4313969-0 (Version None)
Quarter: 2004Q1

REPORT INFORMATION
  Report Type: 
  Country: None (occurrence: None)
  Receive Date: 20040305
  Receipt Date: 20040225
  Transmission Date: 20041129
  Serious: Yes (Hospitalization)
  Sender: FDA-Public Use
  Company Number: HQWYE315425FEB04

PATIENT
  Age: 81 Year
  Sex: Female

DRUGS (10)
  1. CORDARONE [Suspect]
     Indication: ATRIAL FIBRILLATION
     Dosage: 200 MG 5X PER 1 WK ORAL
     Route: 048
     Dates: start: 20031128
  2. PRAVASTATIN SODIUM [Suspect]
     Dosage: 1 DOSE 1X PER 1 DAY ORAL
     Route: 048
     Dates: start: 20031128
  3. OFLOXACIN [Suspect]
     Dosage: ORAL
     Route: 048
     Dates: start: 20031206, end: 20031208
  4. PREVISCAN (FLUINDIONE,) [Suspect]
     Dosage: 10 MG 1X PER 1 DAY ORAL
     Route: 048
     Dates: start: 20030715, end: 20031208
  5. ATACAND [Concomitant]
  6. BISOPROLOL FUMARATE [Concomitant]
  7. QVAR (BECLOMETASONE DIPROPIONATE) [Concomitant]
  8. FORADIL [Concomitant]
  9. STILNOX (ZOLPIDEM) [Concomitant]
  10. FUROSEMIDE [Concomitant]

REACTIONS (6)
  - COUGH [None]
  - DRUG INTERACTION [None]
  - DYSPNOEA [None]
  - HEADACHE [None]
  - HYPOPROTHROMBINAEMIA [None]
  - PYREXIA [None]
